FAERS Safety Report 22803553 (Version 6)
Quarter: 2024Q1

REPORT INFORMATION
  Report Type: Spontaneous
  Country: RO (occurrence: RO)
  Receive Date: 20230809
  Receipt Date: 20240103
  Transmission Date: 20240410
  Serious: Yes (Hospitalization, Other)
  Sender: FDA-Public Use
  Company Number: RO-MYLANLABS-2023M1082822

PATIENT
  Age: 68 Year
  Sex: Male

DRUGS (4)
  1. SUNITINIB [Suspect]
     Active Substance: SUNITINIB
     Indication: Metastatic renal cell carcinoma
     Dosage: 37.5 MG, QD (FOR 4 CONS
     Route: 048
  2. SUNITINIB [Suspect]
     Active Substance: SUNITINIB
     Indication: Metastases to bone
     Dosage: 37.5 MG, Q28D (DAILY, FOR ANOTHER 2 MONTHS
     Route: 048
  3. ZOLEDRONIC ACID [Suspect]
     Active Substance: ZOLEDRONIC ACID
     Indication: Metastatic renal cell carcinoma
     Dosage: 4 MILLIGRAM, 1 TOTAL
     Route: 042
  4. ZOLEDRONIC ACID [Suspect]
     Active Substance: ZOLEDRONIC ACID
     Indication: Metastases to bone

REACTIONS (8)
  - Tooth avulsion [Not Recovered/Not Resolved]
  - Actinomycosis [Recovered/Resolved]
  - Osteonecrosis of jaw [Not Recovered/Not Resolved]
  - Jaw fistula [Not Recovered/Not Resolved]
  - Salivary gland fistula [Unknown]
  - Fistula [Unknown]
  - Drug ineffective [Unknown]
  - Orocutaneous fistula [Not Recovered/Not Resolved]
